FAERS Safety Report 24753685 (Version 3)
Quarter: 2025Q2

REPORT INFORMATION
  Report Type: Report from Study
  Country: CN (occurrence: CN)
  Receive Date: 20241219
  Receipt Date: 20250601
  Transmission Date: 20250717
  Serious: Yes (Hospitalization)
  Sender: STEMLINE THERAPEUTICS
  Company Number: CN-STEMLINE THERAPEUTICS B.V.-2024-STML-CN006750

PATIENT

DRUGS (2)
  1. ELACESTRANT [Suspect]
     Active Substance: ELACESTRANT
     Indication: Breast cancer metastatic
     Dosage: 345 MG, DAILY
     Route: 048
     Dates: start: 20241126, end: 20250201
  2. VITAMIN B2 [Concomitant]
     Active Substance: RIBOFLAVIN
     Indication: Vitamin supplementation
     Dosage: 5 MG, DAILY
     Route: 048
     Dates: start: 20241024

REACTIONS (4)
  - Anaemia [Recovered/Resolved]
  - Decreased appetite [Recovered/Resolved]
  - Nausea [Recovered/Resolved]
  - Diarrhoea [Recovered/Resolved]

NARRATIVE: CASE EVENT DATE: 20241203
